FAERS Safety Report 8494304-3 (Version None)
Quarter: 2012Q2

REPORT INFORMATION
  Report Type: 
  Country: None (occurrence: None)
  Receive Date: 20120628
  Receipt Date: 20120619
  Transmission Date: 20120825
  Serious: Yes (Hospitalization, Other)
  Sender: FDA-Public Use
  Company Number: 2012SP033363

PATIENT
  Age: 43 Year
  Sex: Female
  Weight: 59 kg

DRUGS (2)
  1. DESOGESTREL AND ETHINYL ESTRADIOL [Suspect]
     Indication: CONTRACEPTION
     Dosage: PO; PO
     Route: 048
     Dates: start: 20020101, end: 20120201
  2. DESOGESTREL AND ETHINYL ESTRADIOL [Suspect]
     Indication: CONTRACEPTION
     Dosage: PO; PO
     Route: 048
     Dates: start: 20120401

REACTIONS (4)
  - PROCEDURAL COMPLICATION [None]
  - CEREBROVASCULAR ACCIDENT [None]
  - MENSTRUATION IRREGULAR [None]
  - INTRACRANIAL ANEURYSM [None]
